FAERS Safety Report 16662755 (Version 2)
Quarter: 2020Q1

REPORT INFORMATION
  Report Type: Report from Study
  Country: US (occurrence: US)
  Receive Date: 20190802
  Receipt Date: 20200129
  Transmission Date: 20200409
  Serious: No
  Sender: FDA-Public Use
  Company Number: US-EXELIXIS-CABO-18017698

PATIENT
  Sex: Male
  Weight: 82.54 kg

DRUGS (10)
  1. MULTIVITAMINS, COMBINATIONS [Concomitant]
     Active Substance: VITAMINS
     Dosage: UNK
  2. VITAMIN C [Concomitant]
     Active Substance: ASCORBIC ACID
     Dosage: UNK
  3. GRAPE SEED [Concomitant]
     Active Substance: HERBALS\VITIS VINIFERA SEED
  4. ZINC. [Concomitant]
     Active Substance: ZINC
     Dosage: UNK
  5. MOBIC [Concomitant]
     Active Substance: MELOXICAM
     Dosage: UNK
  6. VITAMIN D3 [Concomitant]
     Active Substance: CHOLECALCIFEROL
     Dosage: UNK
  7. IBUPROFEN. [Concomitant]
     Active Substance: IBUPROFEN
     Dosage: UNK
  8. CABOMETYX [Suspect]
     Active Substance: CABOZANTINIB S-MALATE
     Indication: RENAL CELL CARCINOMA
     Dosage: 60 MG, QD
     Route: 048
  9. SYNTHROID [Concomitant]
     Active Substance: LEVOTHYROXINE SODIUM
     Dosage: UNK
  10. VITAMIN E [Concomitant]
     Active Substance: .ALPHA.-TOCOPHEROL

REACTIONS (9)
  - Rash [Unknown]
  - Blood pressure increased [Unknown]
  - Acne [Unknown]
  - Drug ineffective [Unknown]
  - Asthenia [Unknown]
  - Arthralgia [Unknown]
  - Diarrhoea [Recovering/Resolving]
  - Vomiting [Unknown]
  - Fatigue [Unknown]
